FAERS Safety Report 25986271 (Version 2)
Quarter: 2025Q4

REPORT INFORMATION
  Report Type: Spontaneous
  Country: EU (occurrence: EU)
  Receive Date: 20251101
  Receipt Date: 20251119
  Transmission Date: 20260118
  Serious: Yes (Life-Threatening, Hospitalization, Other)
  Sender: ACCORD
  Company Number: EU-Accord-510492

PATIENT
  Age: 77 Year
  Sex: Female

DRUGS (6)
  1. CISPLATIN [Suspect]
     Active Substance: CISPLATIN
     Indication: Gallbladder adenocarcinoma
     Dosage: 6 CYCLES
     Dates: start: 202404, end: 2024
  2. GEMCITABINE [Suspect]
     Active Substance: GEMCITABINE
     Indication: Gallbladder adenocarcinoma
     Dosage: SIX CYCLES
     Dates: start: 202404, end: 2024
  3. DURVALUMAB [Suspect]
     Active Substance: DURVALUMAB
     Indication: Gallbladder adenocarcinoma
     Dates: start: 202404
  4. GEMCITABINE [Suspect]
     Active Substance: GEMCITABINE
     Indication: Metastases to peritoneum
     Dosage: SIX CYCLES
     Dates: start: 202404, end: 2024
  5. CISPLATIN [Suspect]
     Active Substance: CISPLATIN
     Indication: Metastases to peritoneum
     Dosage: 6 CYCLES
     Dates: start: 202404, end: 2024
  6. DURVALUMAB [Suspect]
     Active Substance: DURVALUMAB
     Indication: Metastases to peritoneum
     Dates: start: 202404

REACTIONS (8)
  - Haematotoxicity [Unknown]
  - Thrombotic microangiopathy [Not Recovered/Not Resolved]
  - Off label use [Unknown]
  - Anaemia [Unknown]
  - Systemic scleroderma [Unknown]
  - Scleroderma renal crisis [Not Recovered/Not Resolved]
  - Pleural effusion [Recovering/Resolving]
  - Autoimmune hepatitis [Recovered/Resolved]

NARRATIVE: CASE EVENT DATE: 20240101
